FAERS Safety Report 9499511 (Version 1)
Quarter: 2013Q3

REPORT INFORMATION
  Report Type: Spontaneous
  Country: TR (occurrence: None)
  Receive Date: 20130903
  Receipt Date: 20130903
  Transmission Date: 20140515
  Serious: Yes (Hospitalization, Other)
  Sender: FDA-Public Use
  Company Number: SYM-2013-09838

PATIENT
  Age: 3 Year
  Sex: Female

DRUGS (1)
  1. WELLBUTRIN XL? [Suspect]
     Indication: PRODUCT USED FOR UNKNOWN INDICATION

REACTIONS (9)
  - Vomiting [None]
  - Epilepsy [None]
  - General physical health deterioration [None]
  - Pupil fixed [None]
  - Toxicity to various agents [None]
  - Electrocardiogram QRS complex prolonged [None]
  - Sick sinus syndrome [None]
  - Cardiac arrest [None]
  - Cardio-respiratory arrest [None]
